FAERS Safety Report 18633084 (Version 1)
Quarter: 2020Q4

REPORT INFORMATION
  Report Type: Report from Study
  Country: US (occurrence: US)
  Receive Date: 20201218
  Receipt Date: 20201218
  Transmission Date: 20210114
  Serious: Yes (Hospitalization, Other)
  Sender: FDA-Public Use
  Company Number: US-REGENERON PHARMACEUTICALS, INC.-2018-45017

PATIENT

DRUGS (1)
  1. EYLEA [Suspect]
     Active Substance: AFLIBERCEPT
     Indication: DIABETIC RETINAL OEDEMA
     Dosage: UNK
     Route: 031
     Dates: start: 2007

REACTIONS (7)
  - Renal failure [Unknown]
  - Ill-defined disorder [Unknown]
  - Thrombosis [Unknown]
  - Spinal fracture [Unknown]
  - Atrial flutter [Unknown]
  - Cataract [Unknown]
  - Fall [Unknown]

NARRATIVE: CASE EVENT DATE: 2020
